FAERS Safety Report 5041299-0 (Version None)
Quarter: 2006Q2

REPORT INFORMATION
  Report Type: 
  Country: None (occurrence: None)
  Receive Date: 20060623
  Receipt Date: 20060616
  Transmission Date: 20061013
  Serious: Yes (Hospitalization)
  Sender: FDA-Public Use
  Company Number: 226394

PATIENT
  Age: 49 Year
  Sex: Female

DRUGS (4)
  1. BEVACIZUMAB (BEVACIZUMAB) PWDR + SOLVENT, INFUSION SOLN, 100 MG [Suspect]
     Indication: NON-SMALL CELL LUNG CANCER
     Dosage: 10 MG/KG,
     Dates: start: 20060605
  2. TAXOL [Suspect]
     Indication: NON-SMALL CELL LUNG CANCER
     Dosage: 45 MG/M2,
     Dates: start: 20060605
  3. CARBOPLATIN [Suspect]
     Indication: NON-SMALL CELL LUNG CANCER
     Dosage: 2 AUC,
     Dates: start: 20060605
  4. RADIOTHERAPY (RADIATION THERAPY) [Concomitant]

REACTIONS (2)
  - DEHYDRATION [None]
  - NAUSEA [None]
